FAERS Safety Report 10176629 (Version 1)
Quarter: 2014Q2

REPORT INFORMATION
  Report Type: Spontaneous
  Country: BR (occurrence: BR)
  Receive Date: 20140516
  Receipt Date: 20140516
  Transmission Date: 20141212
  Serious: Yes (Other)
  Sender: FDA-Public Use
  Company Number: BR-ASTRAZENECA-2014SE31900

PATIENT
  Age: 23924 Day
  Sex: Male

DRUGS (6)
  1. SELOZOK [Suspect]
     Indication: HYPERTENSION
     Dosage: 1 AND 1/2 TABLET IN THE MORNING AND 1 TABLET AT NIGHT
     Route: 048
     Dates: start: 201310
  2. SELOZOK [Suspect]
     Indication: HYPERTENSION
     Dosage: 1 AND 1/2 TABLET IN THE MORNING AND 1 TABLET AT NIGHT
     Route: 048
     Dates: start: 20140413
  3. SELOZOK [Suspect]
     Indication: HYPERTENSION
     Dosage: 1 AND 1/2 TABLET IN THE MORNING AND 1 TABLET AT NIGHT
     Route: 048
  4. AMLODOPINE [Concomitant]
     Indication: HYPERTENSION
     Route: 048
     Dates: start: 201310
  5. PANTOPRAZOLE [Concomitant]
     Route: 048
     Dates: start: 201310
  6. SOMALGIN CARDIO [Concomitant]
     Indication: HYPERTENSION
     Route: 048
     Dates: start: 201310

REACTIONS (3)
  - Blood pressure increased [Recovered/Resolved]
  - Drug ineffective [Unknown]
  - Off label use [Not Recovered/Not Resolved]
